FAERS Safety Report 6872785-6 (Version None)
Quarter: 2010Q3

REPORT INFORMATION
  Report Type: 
  Country: None (occurrence: None)
  Receive Date: 20100723
  Receipt Date: 20081021
  Transmission Date: 20110219
  Serious: No
  Sender: FDA-Public Use
  Company Number: US-PFIZER INC-2008089952

PATIENT
  Age: 51 Year
  Sex: Male

DRUGS (3)
  1. CHANTIX [Suspect]
     Indication: SMOKING CESSATION THERAPY
     Dates: start: 20080919, end: 20081001
  2. PULMICORT [Concomitant]
  3. DUONEB [Concomitant]

REACTIONS (1)
  - RASH [None]
